FAERS Safety Report 16255534 (Version 5)
Quarter: 2020Q4

REPORT INFORMATION
  Report Type: Spontaneous
  Country: US (occurrence: US)
  Receive Date: 20190430
  Receipt Date: 20201222
  Transmission Date: 20210113
  Serious: Yes (Hospitalization, Other)
  Sender: FDA-Public Use
  Company Number: US-TEVA-2019-US-1044965

PATIENT
  Sex: Male

DRUGS (18)
  1. SYNRIBO [Suspect]
     Active Substance: OMACETAXINE MEPESUCCINATE
     Dosage: 2.6 MG/0.63 ML
     Route: 065
     Dates: start: 20190920
  2. TRULICITY [Concomitant]
     Active Substance: DULAGLUTIDE
     Route: 065
  3. PANTOPRAZOLE [Concomitant]
     Active Substance: PANTOPRAZOLE
     Route: 065
  4. SYNRIBO [Suspect]
     Active Substance: OMACETAXINE MEPESUCCINATE
     Dosage: DOSE: 2.28 MG/0.65 ML, TWICE DAILY FOR 3 DAYS
     Route: 058
     Dates: start: 20200327
  5. AMITRIPTYLIN [Concomitant]
     Active Substance: AMITRIPTYLINE
     Route: 065
  6. VITAMIN D [Concomitant]
     Active Substance: VITAMIN D NOS
  7. PIOGLITAZONE. [Concomitant]
     Active Substance: PIOGLITAZONE
  8. INVOKAMET [Concomitant]
     Active Substance: CANAGLIFLOZIN\METFORMIN HYDROCHLORIDE
  9. ANASTROZOLE. [Concomitant]
     Active Substance: ANASTROZOLE
  10. ASPIRIN. [Concomitant]
     Active Substance: ASPIRIN
     Route: 065
  11. VITAMIN B12 [Concomitant]
     Active Substance: CYANOCOBALAMIN
  12. ATORVASTATIN [Concomitant]
     Active Substance: ATORVASTATIN
     Route: 065
  13. JANUVIA [Concomitant]
     Active Substance: SITAGLIPTIN PHOSPHATE
     Route: 065
  14. SYNRIBO [Suspect]
     Active Substance: OMACETAXINE MEPESUCCINATE
     Indication: CHRONIC MYELOID LEUKAEMIA
     Dosage: UNIT DOSE:2.6 MG/0.74 ML
     Dates: start: 20190417
  15. LISINOPRIL. [Concomitant]
     Active Substance: LISINOPRIL
     Route: 065
  16. SYNRIBO [Suspect]
     Active Substance: OMACETAXINE MEPESUCCINATE
     Dosage: UNIT DOSE:2.71MG/0.77ML
     Dates: start: 20190723
  17. GLIPIZIDE. [Concomitant]
     Active Substance: GLIPIZIDE
     Route: 065
  18. EZETIMIBE. [Concomitant]
     Active Substance: EZETIMIBE
     Route: 065

REACTIONS (7)
  - Transfusion [Unknown]
  - Nausea [Unknown]
  - Myalgia [Unknown]
  - Epistaxis [Recovered/Resolved]
  - Renal disorder [Unknown]
  - Blood creatine increased [Unknown]
  - Dyspnoea [Unknown]
